FAERS Safety Report 15749563 (Version 2)
Quarter: 2019Q1

REPORT INFORMATION
  Report Type: Spontaneous
  Country: GB (occurrence: GB)
  Receive Date: 20181221
  Receipt Date: 20190112
  Transmission Date: 20190417
  Serious: Yes (Death)
  Sender: FDA-Public Use
  Company Number: GB-TEVA-2018-GB-989234

PATIENT
  Age: 39 Year
  Sex: Female
  Weight: 62 kg

DRUGS (16)
  1. PAROXETINE. [Suspect]
     Active Substance: PAROXETINE
     Indication: OBSESSIVE-COMPULSIVE DISORDER
     Dosage: 30 MILLIGRAM DAILY;
  2. CHLORHEXIDINE GLUCONATE. [Concomitant]
     Active Substance: CHLORHEXIDINE GLUCONATE
     Dosage: 2 DOSAGE FORMS DAILY;
  3. IBUPROFEN. [Concomitant]
     Active Substance: IBUPROFEN
     Indication: BACK PAIN
  4. AMITRIPTYLINE [Concomitant]
     Active Substance: AMITRIPTYLINE
     Dosage: 20 MILLIGRAM DAILY; NIGHT.
  5. LEVOTHYROXINE. [Concomitant]
     Active Substance: LEVOTHYROXINE
  6. PARACETAMOL [Concomitant]
     Active Substance: ACETAMINOPHEN
     Indication: PAIN
  7. MEBEVERINE [Concomitant]
     Active Substance: MEBEVERINE
     Dosage: 405 MILLIGRAM DAILY;
  8. COCODAMOL [Concomitant]
     Active Substance: ACETAMINOPHEN\CODEINE PHOSPHATE
  9. LEVOTHYROXINE. [Concomitant]
     Active Substance: LEVOTHYROXINE
     Dosage: 100 MICROGRAM DAILY; MORNING - AT LEAST 30 MINUTES BEFORE BREAKFAST, CAFFEINE AND OTHER MEDICATION
  10. LANSOPRAZOLE. [Concomitant]
     Active Substance: LANSOPRAZOLE
  11. CLONAZEPAM. [Concomitant]
     Active Substance: CLONAZEPAM
  12. FERROUS FUMARATE [Concomitant]
     Active Substance: FERROUS FUMARATE
     Dosage: 420 MILLIGRAM DAILY;
  13. LOPERAMIDE [Concomitant]
     Active Substance: LOPERAMIDE
  14. PROPRANOLOL [Concomitant]
     Active Substance: PROPRANOLOL HYDROCHLORIDE
     Dosage: 80 MILLIGRAM DAILY;
  15. NORTRIPTYLINE [Concomitant]
     Active Substance: NORTRIPTYLINE
  16. CYCLIZINE [Concomitant]
     Active Substance: CYCLIZINE

REACTIONS (1)
  - Toxicity to various agents [Fatal]
